FAERS Safety Report 5755754-9 (Version None)
Quarter: 2008Q2

REPORT INFORMATION
  Report Type: 
  Country: None (occurrence: None)
  Receive Date: 20080602
  Receipt Date: 20080528
  Transmission Date: 20081010
  Serious: Yes (Other)
  Sender: FDA-Public Use
  Company Number: US-BAYER-200816833NA

PATIENT
  Age: 42 Year
  Sex: Female
  Weight: 62 kg

DRUGS (4)
  1. YAZ [Suspect]
     Indication: PREMENSTRUAL SYNDROME
     Dates: start: 20071101, end: 20080312
  2. ADDERALL 10 [Concomitant]
  3. AMBILIFY [Concomitant]
  4. SINGULAIR [Concomitant]

REACTIONS (2)
  - MYOCARDIAL INFARCTION [None]
  - RASH ERYTHEMATOUS [None]
